FAERS Safety Report 20343420 (Version 2)
Quarter: 2022Q1

REPORT INFORMATION
  Report Type: Spontaneous
  Country: JP (occurrence: JP)
  Receive Date: 20220118
  Receipt Date: 20220209
  Transmission Date: 20220423
  Serious: Yes (Death, Other)
  Sender: FDA-Public Use
  Company Number: JP-CHUGAI-2022000342

PATIENT
  Age: 66 Year
  Weight: 66.5 kg

DRUGS (8)
  1. TECENTRIQ [Suspect]
     Active Substance: ATEZOLIZUMAB
     Indication: Hepatocellular carcinoma
     Dosage: 1200 MILLILITER, ONCE/3WEEKS
     Route: 041
     Dates: start: 202106, end: 20211226
  2. AVASTIN [Suspect]
     Active Substance: BEVACIZUMAB
     Indication: Hepatocellular carcinoma
     Dosage: 705 MILLIGRAM, QD
     Route: 041
     Dates: start: 20210625, end: 20210625
  3. AVASTIN [Suspect]
     Active Substance: BEVACIZUMAB
     Route: 041
     Dates: start: 20210716, end: 20210716
  4. AVASTIN [Suspect]
     Active Substance: BEVACIZUMAB
     Route: 041
     Dates: start: 20210806, end: 20210806
  5. AVASTIN [Suspect]
     Active Substance: BEVACIZUMAB
     Route: 041
     Dates: start: 20210901, end: 20210924
  6. AVASTIN [Suspect]
     Active Substance: BEVACIZUMAB
     Route: 041
     Dates: start: 20211015, end: 20211015
  7. AVASTIN [Suspect]
     Active Substance: BEVACIZUMAB
     Route: 041
     Dates: start: 20211105, end: 20211105
  8. AVASTIN [Suspect]
     Active Substance: BEVACIZUMAB
     Route: 041
     Dates: start: 20211126, end: 20211126

REACTIONS (6)
  - Multiple organ dysfunction syndrome [Fatal]
  - Interstitial lung disease [Not Recovered/Not Resolved]
  - Hepatic failure [Fatal]
  - Portal vein thrombosis [Fatal]
  - Pulmonary haemorrhage [Unknown]
  - Hepatic encephalopathy [Unknown]

NARRATIVE: CASE EVENT DATE: 20211217
